FAERS Safety Report 8328576-2 (Version None)
Quarter: 2012Q2

REPORT INFORMATION
  Report Type: 
  Country: None (occurrence: None)
  Receive Date: 20120502
  Receipt Date: 20120423
  Transmission Date: 20120825
  Serious: No
  Sender: FDA-Public Use
  Company Number: JP-ABBOTT-12P-087-0918663-00

PATIENT
  Sex: Male
  Weight: 78 kg

DRUGS (13)
  1. FOLIC ACID [Concomitant]
     Indication: PRODUCT USED FOR UNKNOWN INDICATION
     Dates: start: 20110830
  2. LOXOPROFEN SODIUM HYDRATE [Concomitant]
     Indication: RHEUMATOID ARTHRITIS
     Dates: start: 20110809
  3. RHEUMATREX [Suspect]
     Dosage: 8MG/WEEK
     Dates: start: 20111213
  4. RHEUMATREX [Suspect]
     Dosage: 10MG/WEEK
     Dates: start: 20120207
  5. RHEUMATREX [Suspect]
     Dosage: 6MG/WEEK
     Dates: start: 20120321
  6. PREDNISOLONE [Concomitant]
     Indication: RHEUMATOID ARTHRITIS
     Dates: start: 20110809
  7. LANSOPRAZOLE [Concomitant]
     Indication: PRODUCT USED FOR UNKNOWN INDICATION
     Route: 048
     Dates: start: 20110809
  8. HUMIRA [Suspect]
     Indication: RHEUMATOID ARTHRITIS
     Route: 058
     Dates: start: 20120306, end: 20120306
  9. PREDNISOLONE [Concomitant]
     Dates: start: 20120306
  10. RHEUMATREX [Suspect]
     Indication: RHEUMATOID ARTHRITIS
     Dosage: 6MG/WEEK
     Route: 048
     Dates: start: 20110830
  11. PREDNISOLONE [Concomitant]
     Dates: start: 20110830
  12. PREDNISOLONE [Concomitant]
     Dates: start: 20111011
  13. NIFEDIPINE [Concomitant]
     Indication: PRODUCT USED FOR UNKNOWN INDICATION
     Dates: start: 20120321

REACTIONS (8)
  - HEADACHE [None]
  - BLOOD PRESSURE INCREASED [None]
  - DYSLALIA [None]
  - ATAXIA [None]
  - HYPOAESTHESIA [None]
  - INCONTINENCE [None]
  - NAUSEA [None]
  - DIZZINESS [None]
